FAERS Safety Report 7272272-X (Version None)
Quarter: 2011Q1

REPORT INFORMATION
  Report Type: 
  Country: None (occurrence: None)
  Receive Date: 20110131
  Receipt Date: 20110131
  Transmission Date: 20110831
  Serious: Yes (Other)
  Sender: FDA-Public Use
  Company Number: None

PATIENT
  Sex: Male
  Weight: 89.8122 kg

DRUGS (17)
  1. ALTACE [Concomitant]
  2. NASONEX [Concomitant]
  3. TOPROL-XL [Concomitant]
  4. BONIVA [Concomitant]
  5. GABAPENTIN [Concomitant]
  6. ZONEGRAN [Concomitant]
  7. FLOMAX [Concomitant]
  8. VITAMIN B-12 [Concomitant]
  9. DURAGESIC-50 [Concomitant]
  10. VITAMIN D [Concomitant]
  11. CYMBALTA [Suspect]
     Indication: FIBROMYALGIA
     Dosage: 60 MG 1 DAILY PO
     Route: 048
     Dates: start: 20101220, end: 20110113
  12. CYMBALTA [Suspect]
     Indication: DEPRESSION
     Dosage: 60 MG 1 DAILY PO
     Route: 048
     Dates: start: 20101220, end: 20110113
  13. LOVAZA [Concomitant]
  14. OXYCODONE [Concomitant]
  15. PROTONIX [Concomitant]
  16. VICTOZA [Suspect]
     Indication: TYPE 2 DIABETES MELLITUS
     Dosage: 1.2 MG EVERY OTHER DAY SQ
     Dates: start: 20100824, end: 20110124
  17. CELEBREX [Concomitant]

REACTIONS (5)
  - VOMITING [None]
  - NAUSEA [None]
  - HYPOPHAGIA [None]
  - DEHYDRATION [None]
  - DRUG INTERACTION [None]
